FAERS Safety Report 13974773 (Version 5)
Quarter: 2017Q4

REPORT INFORMATION
  Report Type: Report from Study
  Country: DE (occurrence: DE)
  Receive Date: 20170915
  Receipt Date: 20171103
  Transmission Date: 20180321
  Serious: Yes (Life-Threatening)
  Sender: FDA-Public Use
  Company Number: DE-PFIZER INC-2017396592

PATIENT
  Age: 66 Year
  Sex: Female
  Weight: 84 kg

DRUGS (6)
  1. ATRA [Concomitant]
     Active Substance: TRETINOIN
     Indication: ACUTE MYELOID LEUKAEMIA
     Dosage: 90 MG, CYCLIC DAY 6-8 (INDUCTION 1 CYCLE)
     Dates: start: 20170822, end: 20170824
  2. GEMTUZUMAB OZOGAMICIN [Suspect]
     Active Substance: GEMTUZUMAB OZOGAMICIN
     Indication: ACUTE MYELOID LEUKAEMIA
     Dosage: 5.8 MG, CYCLIC (INDUCTION 1 CYCLE)
     Dates: start: 20170817, end: 20170817
  3. CYTARABINE. [Suspect]
     Active Substance: CYTARABINE
     Indication: ACUTE MYELOID LEUKAEMIA
     Dosage: 195 MG, CYCLIC (INDUCTION 1 CYCLE)
     Dates: start: 20170817, end: 20170823
  4. ETOPOSIDE. [Suspect]
     Active Substance: ETOPOSIDE
     Indication: ACUTE MYELOID LEUKAEMIA
     Dosage: 195 MG, CYCLIC DAY 1+3 (INDUCTION 1 CYCLE)
     Dates: start: 20170817, end: 20170819
  5. ATRA [Concomitant]
     Active Substance: TRETINOIN
     Dosage: 30 MG, CYCLIC DAY 9-15 (INDUCTION 1 CYCLE)
     Dates: start: 20170825, end: 20170901
  6. IDARUBICIN HCL [Suspect]
     Active Substance: IDARUBICIN HYDROCHLORIDE
     Indication: ACUTE MYELOID LEUKAEMIA
     Dosage: 23 MG, DAY 1+3 (INDUCTION 1 CYCLE)
     Dates: start: 20170817, end: 20170819

REACTIONS (2)
  - Pneumonia [Recovered/Resolved]
  - Neutropenic colitis [Recovered/Resolved]

NARRATIVE: CASE EVENT DATE: 20170902
